FAERS Safety Report 22220403 (Version 2)
Quarter: 2023Q2

REPORT INFORMATION
  Report Type: Report from Study
  Country: DE (occurrence: DE)
  Receive Date: 20230417
  Receipt Date: 20230529
  Transmission Date: 20230721
  Serious: Yes (Life-Threatening, Hospitalization, Other)
  Sender: FDA-Public Use
  Company Number: DE-BRISTOL-MYERS SQUIBB COMPANY-2022-091676

PATIENT
  Age: 50 Year
  Sex: Female
  Weight: 90 kg

DRUGS (1)
  1. OZANIMOD [Suspect]
     Active Substance: OZANIMOD
     Indication: Multiple sclerosis
     Route: 048
     Dates: start: 20220720

REACTIONS (4)
  - Large intestine polyp [Recovered/Resolved]
  - Dyspnoea [Recovered/Resolved]
  - Pneumonia [Recovered/Resolved]
  - Cardiac failure [Recovered/Resolved]

NARRATIVE: CASE EVENT DATE: 20220825
